FAERS Safety Report 7429062-4 (Version None)
Quarter: 2011Q2

REPORT INFORMATION
  Report Type: 
  Country: None (occurrence: None)
  Receive Date: 20110421
  Receipt Date: 20110418
  Transmission Date: 20111010
  Serious: Yes (Death, Hospitalization)
  Sender: FDA-Public Use
  Company Number: DE-ELI_LILLY_AND_COMPANY-DE201102003639

PATIENT
  Sex: Male
  Weight: 65.3 kg

DRUGS (8)
  1. CISPLATIN [Suspect]
     Indication: NON-SMALL CELL LUNG CANCER
     Dosage: 130 MG, UNK
     Dates: start: 20110207, end: 20110207
  2. METOPROLOL [Concomitant]
     Dosage: UNK
     Dates: start: 20110208
  3. FOLSAN [Concomitant]
     Dosage: UNK
     Dates: start: 20110201
  4. METOPROLOL [Concomitant]
     Indication: HYPERTENSION
     Dosage: UNK
     Dates: start: 20110112, end: 20110206
  5. PANTOPRAZOLE SODIUM [Concomitant]
     Indication: PROPHYLAXIS
     Dosage: UNK
     Dates: start: 20110112, end: 20110328
  6. CLEXANE [Concomitant]
     Indication: THROMBOSIS
     Dosage: UNK
  7. PEMETREXED [Suspect]
     Indication: NON-SMALL CELL LUNG CANCER
     Dosage: 865 MG, UNK
     Dates: start: 20110207, end: 20110207
  8. ASPIRIN [Concomitant]
     Indication: PULMONARY FIBROSIS
     Dosage: UNK
     Dates: start: 20110112, end: 20110329

REACTIONS (1)
  - CEREBROVASCULAR ACCIDENT [None]
